FAERS Safety Report 21189922 (Version 1)
Quarter: 2022Q3

REPORT INFORMATION
  Report Type: Spontaneous
  Country: US (occurrence: None)
  Receive Date: 20220808
  Receipt Date: 20220808
  Transmission Date: 20221027
  Serious: Yes (Disabling)
  Sender: FDA-Public Use
  Company Number: None

PATIENT
  Age: 68 Year
  Sex: Male
  Weight: 74.25 kg

DRUGS (5)
  1. NIACIN [Suspect]
     Active Substance: NIACIN
     Indication: Blood triglycerides abnormal
     Dosage: OTHER QUANTITY : 1 TABLET(S);?FREQUENCY : TWICE A DAY;?
     Route: 048
     Dates: start: 20070101, end: 20220630
  2. NIACIN [Suspect]
     Active Substance: NIACIN
     Indication: LDL/HDL ratio increased
  3. VITAMIN C [Concomitant]
     Active Substance: ASCORBIC ACID
  4. men^s 50 plus multivitamin [Concomitant]
  5. BIOTIN [Concomitant]
     Active Substance: BIOTIN

REACTIONS (2)
  - Anaemia [None]
  - Hepatic cirrhosis [None]

NARRATIVE: CASE EVENT DATE: 20210101
